FAERS Safety Report 5077884-X (Version None)
Quarter: 2006Q3

REPORT INFORMATION
  Report Type: 
  Country: None (occurrence: None)
  Receive Date: 20060720
  Receipt Date: 20050302
  Transmission Date: 20061208
  Serious: Yes (Life-Threatening)
  Sender: FDA-Public Use
  Company Number: 05GER0075

PATIENT
  Age: 75 Year
  Sex: Female

DRUGS (6)
  1. AGGRASTAT [Suspect]
     Indication: MYOCARDIAL INFARCTION
     Dosage: 12 ML/H
     Dates: start: 20041205, end: 20041205
  2. BLOPRESS (CANDESARTAN CILEXETIL) [Concomitant]
  3. DILTIAZEM HYDROCHLORIDE [Concomitant]
  4. INSIDON (OPIPRAMOL HYDROCHLORIDE) [Concomitant]
  5. NITROGLYCERIN [Concomitant]
  6. OXAZEPAM [Concomitant]

REACTIONS (4)
  - HAEMORRHAGE [None]
  - PUNCTURE SITE HAEMORRHAGE [None]
  - RETROPERITONEAL HAEMORRHAGE [None]
  - THROMBOCYTOPENIA [None]
